FAERS Safety Report 8452662-X (Version None)
Quarter: 2012Q2

REPORT INFORMATION
  Report Type: 
  Country: None (occurrence: None)
  Receive Date: 20120620
  Receipt Date: 20120422
  Transmission Date: 20120825
  Serious: No
  Sender: FDA-Public Use
  Company Number: US-VERTEX PHARMACEUTICALS INC.-AE-2012-005783

PATIENT
  Sex: Male
  Weight: 72.64 kg

DRUGS (5)
  1. PEGASYS [Concomitant]
     Indication: HEPATITIS C
     Route: 058
     Dates: start: 20120420
  2. HYPERTENSION MED [Concomitant]
     Indication: BLOOD PRESSURE
  3. INCIVEK [Suspect]
     Indication: HEPATITIS C
     Route: 048
     Dates: start: 20120420
  4. RIBAVIRIN [Concomitant]
     Indication: HEPATITIS C
     Route: 048
     Dates: start: 20120420
  5. DIABETES MED [Concomitant]
     Indication: DIABETES MELLITUS

REACTIONS (3)
  - INSOMNIA [None]
  - HEADACHE [None]
  - ARTHRALGIA [None]
